FAERS Safety Report 9104590 (Version 1)
Quarter: 2013Q1

REPORT INFORMATION
  Report Type: Spontaneous
  Country: FI (occurrence: FI)
  Receive Date: 20130219
  Receipt Date: 20130219
  Transmission Date: 20140127
  Serious: Yes (Hospitalization, Other)
  Sender: FDA-Public Use
  Company Number: FI-ROCHE-1191628

PATIENT
  Age: 37 Year
  Sex: Female

DRUGS (2)
  1. XELODA [Suspect]
     Indication: ADENOCARCINOMA
     Route: 065
  2. OXALIPLATIN [Suspect]
     Indication: ADENOCARCINOMA
     Route: 065

REACTIONS (4)
  - Post procedural sepsis [Recovered/Resolved]
  - Salivary gland pain [Recovering/Resolving]
  - Transaminases increased [Not Recovered/Not Resolved]
  - Pain [Recovering/Resolving]
